FAERS Safety Report 9735677 (Version 3)
Quarter: 2016Q1

REPORT INFORMATION
  Report Type: Report from Study
  Country: US (occurrence: US)
  Receive Date: 20131206
  Receipt Date: 20160208
  Transmission Date: 20160526
  Serious: Yes (Death, Hospitalization, Other)
  Sender: FDA-Public Use
  Company Number: US-ASTELLAS-2013US012751

PATIENT
  Age: 80 Year
  Sex: Female

DRUGS (2)
  1. ERLOTINIB [Suspect]
     Active Substance: ERLOTINIB
     Indication: LUNG NEOPLASM MALIGNANT
     Route: 048
     Dates: start: 20100310
  2. ERLOTINIB [Suspect]
     Active Substance: ERLOTINIB
     Route: 048
     Dates: start: 2011

REACTIONS (8)
  - Fall [Unknown]
  - Hip fracture [Recovering/Resolving]
  - Ear infection [Unknown]
  - Lung neoplasm malignant [Fatal]
  - Myocardial infarction [Recovered/Resolved]
  - Pain [Unknown]
  - Immune system disorder [Fatal]
  - Pneumonia [Fatal]

NARRATIVE: CASE EVENT DATE: 201304
